FAERS Safety Report 5822458-3 (Version None)
Quarter: 2008Q3

REPORT INFORMATION
  Report Type: 
  Country: None (occurrence: None)
  Receive Date: 20080725
  Receipt Date: 20080219
  Transmission Date: 20090109
  Serious: No
  Sender: FDA-Public Use
  Company Number: US-AMGEN-KDL266141

PATIENT
  Sex: Female
  Weight: 66.7 kg

DRUGS (2)
  1. PROCRIT [Suspect]
     Indication: ANAEMIA OF MALIGNANT DISEASE
     Route: 058
     Dates: start: 20080205, end: 20080219
  2. CARBOTAXOL [Concomitant]
     Dates: start: 20080101

REACTIONS (2)
  - BODY TEMPERATURE INCREASED [None]
  - CHILLS [None]
